FAERS Safety Report 11522813 (Version 1)
Quarter: 2015Q3

REPORT INFORMATION
  Report Type: Report from Study
  Country: US (occurrence: US)
  Receive Date: 20150918
  Receipt Date: 20150918
  Transmission Date: 20151125
  Serious: Yes (Hospitalization)
  Sender: FDA-Public Use
  Company Number: US-ACTELION-A-NJ2015-123975

PATIENT
  Age: 64 Year
  Sex: Female

DRUGS (2)
  1. VELETRI [Suspect]
     Active Substance: EPOPROSTENOL
     Indication: PULMONARY HYPERTENSION
     Dosage: 67 NG/KG, PER MIN
     Route: 042
  2. WARFARIN [Concomitant]
     Active Substance: WARFARIN

REACTIONS (4)
  - Herpes zoster [Unknown]
  - Pericardial effusion [Unknown]
  - Abdominal pain upper [Unknown]
  - Liver disorder [Unknown]
